FAERS Safety Report 6110461-8 (Version None)
Quarter: 2009Q1

REPORT INFORMATION
  Report Type: 
  Country: None (occurrence: None)
  Receive Date: 20090310
  Receipt Date: 20090223
  Transmission Date: 20090719
  Serious: Yes (Other)
  Sender: FDA-Public Use
  Company Number: ES-AMGEN-UK333396

PATIENT
  Sex: Female
  Weight: 61 kg

DRUGS (2)
  1. ARANESP [Suspect]
     Indication: RENAL FAILURE CHRONIC
     Route: 058
     Dates: start: 20060329, end: 20070618
  2. PREDNISONE [Concomitant]
     Route: 048
     Dates: start: 20060329

REACTIONS (1)
  - CAESAREAN SECTION [None]
